FAERS Safety Report 6099739-4 (Version None)
Quarter: 2009Q1

REPORT INFORMATION
  Report Type: 
  Country: None (occurrence: None)
  Receive Date: 20090303
  Receipt Date: 20090219
  Transmission Date: 20090719
  Serious: Yes (Hospitalization)
  Sender: FDA-Public Use
  Company Number: US-ROCHE-615763

PATIENT
  Sex: Female
  Weight: 82.6 kg

DRUGS (1)
  1. CAPECITABINE [Suspect]
     Indication: COLORECTAL CANCER
     Route: 048

REACTIONS (2)
  - CHEST PAIN [None]
  - PULMONARY THROMBOSIS [None]
